FAERS Safety Report 15875891 (Version 7)
Quarter: 2019Q3

REPORT INFORMATION
  Report Type: Spontaneous
  Country: US (occurrence: US)
  Receive Date: 20190126
  Receipt Date: 20190710
  Transmission Date: 20191004
  Serious: Yes (Congenital Anomaly, Other)
  Sender: FDA-Public Use
  Company Number: PHEH2019US003472

PATIENT
  Sex: Male

DRUGS (1)
  1. ZOFRAN [Suspect]
     Active Substance: ONDANSETRON HYDROCHLORIDE
     Indication: FOETAL EXPOSURE DURING PREGNANCY
     Dosage: MOTHER DOSE: 8 MG, QD
     Route: 064

REACTIONS (24)
  - Congenital aortic valve incompetence [Unknown]
  - Mitral valve incompetence [Unknown]
  - Cardiac murmur [Unknown]
  - Atelectasis [Unknown]
  - Chest pain [Unknown]
  - Right ventricular enlargement [Unknown]
  - Right atrial enlargement [Unknown]
  - Right ventricular dilatation [Unknown]
  - Aortic valve disease [Unknown]
  - Foetal exposure during pregnancy [Unknown]
  - Bundle branch block right [Unknown]
  - Atrial septal defect [Unknown]
  - Left-to-right cardiac shunt [Unknown]
  - Tricuspid valve incompetence [Unknown]
  - Right ventricular hypertrophy [Unknown]
  - Palpitations [Unknown]
  - Conduction disorder [Unknown]
  - Diarrhoea [Unknown]
  - Mitral valve disease [Unknown]
  - Left ventricular hypertrophy [Unknown]
  - Nausea [Unknown]
  - Vomiting [Unknown]
  - Heart disease congenital [Unknown]
  - Laevocardia [Unknown]
